FAERS Safety Report 4804305-1 (Version None)
Quarter: 2005Q4

REPORT INFORMATION
  Report Type: 
  Country: None (occurrence: None)
  Receive Date: 20051017
  Receipt Date: 20051006
  Transmission Date: 20060501
  Serious: Yes (Death)
  Sender: FDA-Public Use
  Company Number: 2005JP001950

PATIENT
  Age: 57 Year
  Sex: Female

DRUGS (2)
  1. TACROLIMUS CAPSULES (TACROLIMUS) CAPSULES [Suspect]
     Indication: RHEUMATOID ARTHRITIS
     Dosage: 1.50 MG, UNKNOWN/D, ORAL
     Route: 048
     Dates: start: 20050614, end: 20050824
  2. PREDNISOLONE [Concomitant]

REACTIONS (10)
  - ABDOMINAL PAIN [None]
  - BLOOD PRESSURE DECREASED [None]
  - C-REACTIVE PROTEIN INCREASED [None]
  - CHEST PAIN [None]
  - CHILLS [None]
  - ENTEROCOCCAL INFECTION [None]
  - HYPERTHERMIA [None]
  - PLEURAL EFFUSION [None]
  - PNEUMONIA [None]
  - STREPTOCOCCAL SEPSIS [None]
